FAERS Safety Report 21237246 (Version 1)
Quarter: 2022Q3

REPORT INFORMATION
  Report Type: Spontaneous
  Country: US (occurrence: US)
  Receive Date: 20220822
  Receipt Date: 20220822
  Transmission Date: 20221027
  Serious: Yes (Other)
  Sender: FDA-Public Use
  Company Number: US-SAGENT PHARMACEUTICALS-2022SAG001753

PATIENT

DRUGS (2)
  1. GEMCITABINE [Suspect]
     Active Substance: GEMCITABINE
     Indication: Pancreatic carcinoma
     Dosage: 1000 MG/M^2, ON DAYS 1, 8, 15
     Route: 042
  2. ALISERTIB [Suspect]
     Active Substance: ALISERTIB
     Indication: Pancreatic carcinoma
     Dosage: 20 MILLIGRAM, BID, ON DAYS 1?3, 8?10, AND 15?17 OF A 28-DAY TREATMENT CYCLE
     Route: 048

REACTIONS (6)
  - Hyponatraemia [Unknown]
  - Mucosal inflammation [Unknown]
  - Leukopenia [Unknown]
  - Neutropenia [Unknown]
  - Lymphopenia [Unknown]
  - Anaemia [Unknown]
